FAERS Safety Report 8577611-5 (Version None)
Quarter: 2012Q3

REPORT INFORMATION
  Report Type: 
  Country: None (occurrence: None)
  Receive Date: 20120807
  Receipt Date: 20120726
  Transmission Date: 20120928
  Serious: Yes (Hospitalization, Disabling, Other)
  Sender: FDA-Public Use
  Company Number: CA-FRI-1000029770

PATIENT
  Sex: Male

DRUGS (9)
  1. GABAPENTIN [Suspect]
     Dosage: 1800 MG
     Route: 064
  2. SEROQUEL [Suspect]
     Dosage: 100 MG
     Route: 064
  3. BENZTROPINE MESYLATE [Suspect]
     Dosage: 1.5 MG
     Route: 064
  4. SEROQUEL XR [Suspect]
     Dosage: 300 MG
     Route: 064
  5. ESCITALOPRAM [Suspect]
     Dosage: 20 MG
     Route: 064
  6. ZOPICLONE [Suspect]
     Dosage: 7.5 MG
     Route: 064
  7. METHADONE HYDROCHLORIDE [Suspect]
     Dosage: 70 MG
     Route: 064
  8. NORTRIPTYLINE HCL [Suspect]
     Dosage: 20 MG
     Route: 064
  9. RABEPRAZOLE SODIUM [Suspect]
     Dosage: 40 MG
     Route: 064

REACTIONS (8)
  - NEONATAL TACHYPNOEA [None]
  - DIARRHOEA NEONATAL [None]
  - HYPERTONIA NEONATAL [None]
  - FOETAL EXPOSURE DURING PREGNANCY [None]
  - EXTRAPYRAMIDAL DISORDER [None]
  - POOR QUALITY SLEEP [None]
  - TRISMUS [None]
  - FEEDING DISORDER NEONATAL [None]
